FAERS Safety Report 7102794-3 (Version None)
Quarter: 2010Q4

REPORT INFORMATION
  Report Type: 
  Country: None (occurrence: None)
  Receive Date: 20101115
  Receipt Date: 20101108
  Transmission Date: 20110411
  Serious: Yes (Life-Threatening)
  Sender: FDA-Public Use
  Company Number: PHHY2010SE75076

PATIENT
  Sex: Female

DRUGS (3)
  1. RITALIN [Suspect]
     Dosage: 29 TABLETS
  2. OXASCAND [Concomitant]
  3. ZOPIKLON [Concomitant]

REACTIONS (7)
  - ACIDOSIS [None]
  - BLOOD LACTATE DEHYDROGENASE INCREASED [None]
  - CYANOSIS [None]
  - DRUG TOXICITY [None]
  - HEPATIC ENZYME INCREASED [None]
  - LOSS OF CONSCIOUSNESS [None]
  - SNORING [None]
